FAERS Safety Report 9160521 (Version 6)
Quarter: 2014Q1

REPORT INFORMATION
  Report Type: Report from Study
  Country: BR (occurrence: BR)
  Receive Date: 20130313
  Receipt Date: 20140106
  Transmission Date: 20141002
  Serious: Yes (Other)
  Sender: FDA-Public Use
  Company Number: PHHY2012BR112092

PATIENT
  Sex: Male
  Weight: 80 kg

DRUGS (14)
  1. EXJADE [Suspect]
     Indication: MYELODYSPLASTIC SYNDROME
     Dosage: 1 DF, USED FOR 1 WEEK
     Route: 048
  2. EXJADE [Suspect]
     Dosage: 2 DF, USED FOR 1 WEEK
     Route: 048
  3. EXJADE [Suspect]
     Dosage: 3 DF, USED FOR 1 WEEK
     Route: 048
  4. EXJADE [Suspect]
     Dosage: 4 DF, UNK
     Route: 048
     Dates: start: 2011
  5. EXJADE [Suspect]
     Dosage: UNK UKN, UNK
     Route: 048
     Dates: start: 20120610
  6. EXJADE [Suspect]
     Dosage: 4 DF, DAILY
     Route: 048
     Dates: start: 20120612
  7. EXJADE [Suspect]
     Dosage: 6 DF, DAILY
     Route: 048
  8. OSTEOFOR [Concomitant]
     Indication: OSTEOPOROSIS
     Dosage: 1 DF, EVERY 7 DAYS
     Route: 048
     Dates: start: 2010
  9. CONCOR [Concomitant]
     Dosage: 1 DF DAILY
     Route: 048
  10. LOSARTAN [Concomitant]
     Dosage: 2 DF, DAILY
     Route: 048
  11. HYDROCHLOROTHIAZIDE [Concomitant]
     Indication: POLYURIA
     Dosage: UNK UKN, UNK
     Route: 048
  12. CALCIUM [Concomitant]
     Dosage: UNK
     Route: 048
     Dates: start: 2010
  13. CARDILOL//CARVEDILOL [Concomitant]
     Dosage: UNK UKN, UNK
  14. ALDACTONE [Concomitant]
     Dosage: UNK UKN, UNK

REACTIONS (3)
  - Dysentery [Unknown]
  - Serum ferritin increased [Not Recovered/Not Resolved]
  - Pruritus [Not Recovered/Not Resolved]
